FAERS Safety Report 5888332-1 (Version None)
Quarter: 2008Q3

REPORT INFORMATION
  Report Type: 
  Country: None (occurrence: None)
  Receive Date: 20080918
  Receipt Date: 20080911
  Transmission Date: 20090109
  Serious: Yes (Hospitalization)
  Sender: FDA-Public Use
  Company Number: FR-AVENTIS-200711941FR

PATIENT
  Age: 8 Year
  Sex: Female
  Weight: 22 kg

DRUGS (4)
  1. CLAFORAN [Suspect]
     Route: 042
     Dates: start: 20061215, end: 20061222
  2. CLAFORAN [Suspect]
     Route: 042
     Dates: start: 20061224, end: 20070106
  3. TARGOCID [Concomitant]
     Route: 042
     Dates: start: 20061230, end: 20070103
  4. VANCOMYCIN HCL [Concomitant]
     Route: 042
     Dates: start: 20070104, end: 20070106

REACTIONS (10)
  - ABDOMINAL PAIN [None]
  - EOSINOPHILIA [None]
  - EYELID OEDEMA [None]
  - HYPERSENSITIVITY [None]
  - HYPOTENSION [None]
  - MALAISE [None]
  - OEDEMA MOUTH [None]
  - RASH MORBILLIFORM [None]
  - TACHYCARDIA [None]
  - THROMBOCYTOPENIA [None]
